FAERS Safety Report 4516621-1 (Version None)
Quarter: 2004Q4

REPORT INFORMATION
  Report Type: 
  Country: None (occurrence: None)
  Receive Date: 20041202
  Receipt Date: 20041129
  Transmission Date: 20050328
  Serious: Yes (Hospitalization)
  Sender: FDA-Public Use
  Company Number: US-JNJFOC-20041003767

PATIENT
  Sex: Female

DRUGS (6)
  1. DURAGESIC [Suspect]
     Route: 062
     Dates: start: 19990101
  2. HYDROCHLOROTHIAZIDE [Concomitant]
     Route: 049
  3. MEVACOR [Concomitant]
     Route: 049
  4. POTASSIUM [Concomitant]
     Route: 049
  5. TOPROL-XL [Concomitant]
     Route: 049
  6. SYNTHROID [Concomitant]
     Route: 049

REACTIONS (3)
  - OVARIAN CYST [None]
  - RENAL CELL CARCINOMA STAGE UNSPECIFIED [None]
  - THYROID MASS [None]
